FAERS Safety Report 6102628-X (Version None)
Quarter: 2009Q1

REPORT INFORMATION
  Report Type: 
  Country: None (occurrence: None)
  Receive Date: 20090304
  Receipt Date: 20081022
  Transmission Date: 20090719
  Serious: No
  Sender: FDA-Public Use
  Company Number: A0753047A

PATIENT
  Age: 84 Year
  Sex: Male

DRUGS (6)
  1. REQUIP [Suspect]
     Indication: PARKINSON'S DISEASE
     Dosage: 3MG EIGHT TIMES PER DAY
     Route: 048
  2. REQUIP XL [Suspect]
     Indication: PARKINSON'S DISEASE
     Dosage: 8MG UNKNOWN
     Route: 048
  3. LISINOPRIL [Concomitant]
  4. LIPITOR [Concomitant]
  5. HYDROCHLOROTHIAZIDE [Concomitant]
  6. STALEVO 100 [Concomitant]
     Dosage: 3MG EIGHT TIMES PER DAY
     Route: 048

REACTIONS (3)
  - BLOOD CATECHOLAMINES ABNORMAL [None]
  - DYSKINESIA [None]
  - IMMOBILE [None]
